FAERS Safety Report 6928304-9 (Version None)
Quarter: 2010Q3

REPORT INFORMATION
  Report Type: 
  Country: None (occurrence: None)
  Receive Date: 20100817
  Receipt Date: 20100812
  Transmission Date: 20110219
  Serious: Yes (Death, Other)
  Sender: FDA-Public Use
  Company Number: GB-ROCHE-720672

PATIENT
  Age: 47 Year
  Sex: Male
  Weight: 84 kg

DRUGS (1)
  1. XELODA [Suspect]
     Dosage: START DATE, DOSE, FORM, FREQUENCY: NOT REPORTED, DRUG WITHDRAWN ON 15 JULY 2010
     Route: 048
     Dates: end: 20100715

REACTIONS (4)
  - BONE MARROW FAILURE [None]
  - MUCOCUTANEOUS RASH [None]
  - MULTI-ORGAN FAILURE [None]
  - NEUTROPENIC SEPSIS [None]
